FAERS Safety Report 8290830-0 (Version None)
Quarter: 2012Q2

REPORT INFORMATION
  Report Type: 
  Country: None (occurrence: None)
  Receive Date: 20120417
  Receipt Date: 20120214
  Transmission Date: 20120825
  Serious: No
  Sender: FDA-Public Use
  Company Number: US-BRISTOL-MYERS SQUIBB COMPANY-16399172

PATIENT

DRUGS (16)
  1. AVAPRO [Suspect]
  2. PLAVIX [Suspect]
  3. REYATAZ [Suspect]
  4. HYDREA [Suspect]
  5. AVALIDE [Suspect]
  6. SUSTIVA [Suspect]
  7. SPRYCEL [Suspect]
  8. ZERIT [Suspect]
  9. COUMADIN [Suspect]
  10. VIDEX [Suspect]
  11. GLUCOVANCE [Suspect]
  12. ONGLYZA [Suspect]
  13. AZACTAM [Suspect]
     Dosage: POWDERED VIAL
  14. ABILIFY [Suspect]
  15. KOMBIGLYZE XR [Suspect]
  16. KENALOG-40 [Suspect]

REACTIONS (1)
  - INCORRECT STORAGE OF DRUG [None]
